FAERS Safety Report 25798709 (Version 1)
Quarter: 2025Q3

REPORT INFORMATION
  Report Type: Spontaneous
  Country: US (occurrence: US)
  Receive Date: 20250913
  Receipt Date: 20250913
  Transmission Date: 20251021
  Serious: Yes (Hospitalization)
  Sender: CHIESI
  Company Number: US-CHIESI-2025CHF06388

PATIENT
  Sex: Female

DRUGS (3)
  1. MYCAPSSA [Suspect]
     Active Substance: OCTREOTIDE
     Indication: Blood loss anaemia
     Route: 065
  2. MYCAPSSA [Suspect]
     Active Substance: OCTREOTIDE
     Indication: Gastrointestinal arteriovenous malformation
  3. MYCAPSSA [Suspect]
     Active Substance: OCTREOTIDE
     Indication: Off label use

REACTIONS (3)
  - Ill-defined disorder [Recovering/Resolving]
  - Product use issue [Not Recovered/Not Resolved]
  - Off label use [Not Recovered/Not Resolved]
